FAERS Safety Report 25318613 (Version 1)
Quarter: 2025Q2

REPORT INFORMATION
  Report Type: Spontaneous
  Country: CN (occurrence: CN)
  Receive Date: 20250515
  Receipt Date: 20250515
  Transmission Date: 20250716
  Serious: Yes (Other)
  Sender: JOHNSON AND JOHNSON
  Company Number: CN-JNJFOC-20250512843

PATIENT
  Age: 69 Year
  Sex: Female

DRUGS (2)
  1. TOPAMAX [Suspect]
     Active Substance: TOPIRAMATE
     Indication: Headache
     Route: 048
     Dates: start: 20250502, end: 20250503
  2. PREGABALIN [Suspect]
     Active Substance: PREGABALIN
     Indication: Headache
     Route: 048
     Dates: start: 20250502, end: 20250503

REACTIONS (4)
  - Urinary retention [Recovering/Resolving]
  - Oliguria [Recovering/Resolving]
  - Confusional state [Recovering/Resolving]
  - Tremor [Recovering/Resolving]

NARRATIVE: CASE EVENT DATE: 20250503
